FAERS Safety Report 20695368 (Version 15)
Quarter: 2025Q4

REPORT INFORMATION
  Report Type: Spontaneous
  Country: US (occurrence: US)
  Receive Date: 20220411
  Receipt Date: 20251125
  Transmission Date: 20260117
  Serious: Yes (Other)
  Sender: PFIZER
  Company Number: US-PFIZER INC-202101665736

PATIENT
  Age: 68 Year
  Sex: Female

DRUGS (3)
  1. PREMARIN [Suspect]
     Active Substance: ESTROGENS, CONJUGATED
     Dosage: UNK
     Dates: start: 1987
  2. PREMARIN [Suspect]
     Active Substance: ESTROGENS, CONJUGATED
     Dosage: APPLY 1 APPLICATORFUL BY VAGINAL ROUTE 2 TIMES A WEEK
     Route: 067
  3. PREMARIN [Suspect]
     Active Substance: ESTROGENS, CONJUGATED
     Dosage: QUANTITY FOR 90 DAYS: 1-42.5 GR. TUBE

REACTIONS (9)
  - Migraine [Unknown]
  - Headache [Unknown]
  - Neck pain [Unknown]
  - Drug hypersensitivity [Unknown]
  - Memory impairment [Unknown]
  - Off label use [Unknown]
  - Product prescribing error [Unknown]
  - Intentional product use issue [Unknown]
  - Nerve injury [Unknown]
